FAERS Safety Report 8337475-1 (Version None)
Quarter: 2012Q2

REPORT INFORMATION
  Report Type: 
  Country: None (occurrence: None)
  Receive Date: 20120504
  Receipt Date: 20080926
  Transmission Date: 20120825
  Serious: Yes (Death)
  Sender: FDA-Public Use
  Company Number: CH-ROCHE-588585

PATIENT
  Sex: Male

DRUGS (3)
  1. DAUNORUBICIN HYDROCHLORIDE [Suspect]
     Indication: ACUTE MYELOID LEUKAEMIA
     Dosage: DOSAGE FORM AS PER PROTOCOL:INFUSION. DRUG NAME REPORTED AS DONORUBICIN.
     Route: 042
  2. CYTARABINE HYDROCHLORIDE [Suspect]
     Indication: ACUTE MYELOID LEUKAEMIA
     Dosage: AS PER PROTOCOL:DOSAGE FORM : INFUSION
     Route: 042
  3. AVASTIN [Suspect]
     Indication: ACUTE MYELOID LEUKAEMIA
     Dosage: AS PER PROTOCOL: DOSAGE FORM INFUSION
     Route: 042

REACTIONS (2)
  - BONE MARROW FAILURE [None]
  - SEPSIS [None]
